FAERS Safety Report 15880898 (Version 2)
Quarter: 2019Q1

REPORT INFORMATION
  Report Type: Spontaneous
  Country: US (occurrence: US)
  Receive Date: 20190128
  Receipt Date: 20190207
  Transmission Date: 20190417
  Serious: No
  Sender: FDA-Public Use
  Company Number: US-ELI_LILLY_AND_COMPANY-US201901012390

PATIENT
  Age: 78 Year
  Sex: Female

DRUGS (1)
  1. BASAGLAR [Suspect]
     Active Substance: INSULIN GLARGINE
     Indication: PRODUCT USED FOR UNKNOWN INDICATION
     Dosage: 70 U, DAILY
     Route: 065
     Dates: start: 201801

REACTIONS (3)
  - Vulvovaginal burning sensation [Unknown]
  - Urethral dilatation [Unknown]
  - Urethral pain [Unknown]

NARRATIVE: CASE EVENT DATE: 201810
